FAERS Safety Report 12255550 (Version 1)
Quarter: 2016Q2

REPORT INFORMATION
  Report Type: Spontaneous
  Country: US (occurrence: None)
  Receive Date: 20160411
  Receipt Date: 20160411
  Transmission Date: 20160815
  Serious: Yes (Hospitalization, Other)
  Sender: FDA-Public Use
  Company Number: None

PATIENT
  Age: 58 Year
  Sex: Female
  Weight: 71.8 kg

DRUGS (5)
  1. EPOPROSTENOL. [Concomitant]
     Active Substance: EPOPROSTENOL
  2. TRIMETHOPRIME-SULFAMETHOXAZOLE [Concomitant]
  3. AZATHIOPRINE, [Suspect]
     Active Substance: AZATHIOPRINE SODIUM
     Indication: IMMUNOSUPPRESSION
     Dosage: VARIED ORAL
     Route: 048
  4. AZATHIOPRINE, [Suspect]
     Active Substance: AZATHIOPRINE SODIUM
     Indication: LUNG TRANSPLANT
     Dosage: VARIED ORAL
     Route: 048
  5. CEFAZOLIN [Concomitant]
     Active Substance: CEFAZOLIN

REACTIONS (4)
  - Diarrhoea [None]
  - Alanine aminotransferase increased [None]
  - Aspartate aminotransferase increased [None]
  - Abdominal pain [None]

NARRATIVE: CASE EVENT DATE: 20150727
